FAERS Safety Report 8513943-4 (Version None)
Quarter: 2012Q3

REPORT INFORMATION
  Report Type: 
  Country: None (occurrence: None)
  Receive Date: 20120717
  Receipt Date: 20120705
  Transmission Date: 20120928
  Serious: Yes (Death)
  Sender: FDA-Public Use
  Company Number: JP-009507513-1206USA02798

PATIENT

DRUGS (9)
  1. PANTOL [Concomitant]
     Dates: start: 20120517
  2. SENNA-MINT WAF [Concomitant]
     Dosage: UNK
     Dates: start: 20120517
  3. DUTASTERIDE [Concomitant]
  4. BOFU-TSUSHO-SAN [Concomitant]
     Dates: start: 20120517
  5. URIEF [Concomitant]
  6. SITAGLIPTIN PHOSPHATE [Suspect]
     Dosage: 50 MG, QD
     Route: 048
     Dates: start: 20120517, end: 20120501
  7. MAGMITT [Concomitant]
     Dosage: UNK
     Dates: start: 20120517
  8. MAGMITT [Concomitant]
     Dosage: UNK
     Dates: start: 20120507, end: 20120514
  9. SENNA-MINT WAF [Concomitant]
     Dosage: 24 MG, UNK
     Dates: start: 20120517, end: 20120517

REACTIONS (1)
  - DEATH [None]
